FAERS Safety Report 9516037 (Version 1)
Quarter: 2013Q3

REPORT INFORMATION
  Report Type: Spontaneous
  Country: US (occurrence: US)
  Receive Date: 20130911
  Receipt Date: 20130911
  Transmission Date: 20140515
  Serious: Yes (Death, Other)
  Sender: FDA-Public Use
  Company Number: CHPA2013US013959

PATIENT
  Age: 98 Year
  Sex: Male

DRUGS (2)
  1. EXCEDRIN TENSION HEADACHE [Suspect]
     Indication: HEADACHE
     Dosage: 2 DF, BID
     Route: 048
  2. EXCEDRIN TENSION HEADACHE [Suspect]
     Dosage: 1 DF, BID
     Route: 048

REACTIONS (4)
  - Death [Fatal]
  - Hypertension [Unknown]
  - Gastrooesophageal reflux disease [Unknown]
  - Incorrect dose administered [Unknown]
